FAERS Safety Report 5071832-4 (Version None)
Quarter: 2006Q3

REPORT INFORMATION
  Report Type: 
  Country: None (occurrence: None)
  Receive Date: 20060801
  Receipt Date: 20060727
  Transmission Date: 20061208
  Serious: Yes (Other)
  Sender: FDA-Public Use
  Company Number: 200051154BVD

PATIENT
  Age: 69 Year
  Sex: Female
  Weight: 72 kg

DRUGS (2)
  1. AVELOX [Suspect]
     Indication: BRONCHITIS BACTERIAL
     Dosage: 400 MG, TOTAL DAILY, ORAL
     Route: 048
     Dates: start: 20000303, end: 20000308
  2. AVELOX [Suspect]
     Indication: DISEASE RECURRENCE
     Dosage: 400 MG, TOTAL DAILY, ORAL
     Route: 048
     Dates: start: 20000303, end: 20000308

REACTIONS (4)
  - DYSPNOEA [None]
  - HYPERTENSION [None]
  - OEDEMA PERIPHERAL [None]
  - PULMONARY CONGESTION [None]
